FAERS Safety Report 7692448-7 (Version None)
Quarter: 2011Q3

REPORT INFORMATION
  Report Type: 
  Country: None (occurrence: None)
  Receive Date: 20110818
  Receipt Date: 20110808
  Transmission Date: 20111222
  Serious: Yes (Hospitalization)
  Sender: FDA-Public Use
  Company Number: US-ASTRAZENECA-2011SE47848

PATIENT
  Age: 54 Year
  Sex: Female

DRUGS (2)
  1. OMEPRAZOLE [Suspect]
     Route: 048
  2. NEXIUM [Concomitant]
     Route: 048

REACTIONS (2)
  - DRUG INTOLERANCE [None]
  - ABDOMINAL DISCOMFORT [None]
